FAERS Safety Report 14496642 (Version 1)
Quarter: 2018Q1

REPORT INFORMATION
  Report Type: Spontaneous
  Country: JP (occurrence: JP)
  Receive Date: 20180207
  Receipt Date: 20180207
  Transmission Date: 20180509
  Serious: Yes (Other)
  Sender: FDA-Public Use
  Company Number: PHJP2018JP002377

PATIENT
  Sex: Female

DRUGS (3)
  1. PONSTEL [Concomitant]
     Active Substance: MEFENAMIC ACID
     Indication: TOOTHACHE
     Dosage: UNK
     Route: 065
  2. TEGRETOL [Suspect]
     Active Substance: CARBAMAZEPINE
     Indication: TRIGEMINAL NEURALGIA
     Dosage: 1 DF, BID
     Route: 048
  3. TEGRETOL [Suspect]
     Active Substance: CARBAMAZEPINE
     Dosage: 2 DF, BID
     Route: 048

REACTIONS (3)
  - Gingival bleeding [Unknown]
  - Epilepsy [Unknown]
  - Nausea [Recovering/Resolving]
